FAERS Safety Report 8954252 (Version 5)
Quarter: 2013Q1

REPORT INFORMATION
  Report Type: Spontaneous
  Country: US (occurrence: US)
  Receive Date: 20121207
  Receipt Date: 20130304
  Transmission Date: 20140127
  Serious: Yes (Other)
  Sender: FDA-Public Use
  Company Number: PHEH2012US023945

PATIENT
  Age: 23 Year
  Sex: Female
  Weight: 79.37 kg

DRUGS (10)
  1. GILENYA [Suspect]
     Indication: RELAPSING-REMITTING MULTIPLE SCLEROSIS
     Dosage: 0.5 MG, QD
     Route: 048
     Dates: start: 20110620, end: 20130221
  2. LOESTRIN-FE [Concomitant]
     Dosage: 1 TAB, DAILY
     Dates: start: 20110620
  3. FLAXSEED OIL [Concomitant]
     Dosage: 1 DF, DAILY
     Route: 048
  4. HYDROCHOROTHIAZIDE [Concomitant]
     Dosage: 1 DF, DAILY
     Route: 048
  5. KLONOPIN [Concomitant]
     Dosage: 1 DF, PRN
     Route: 048
  6. LOESTRIN-FE 1/20 [Concomitant]
     Dosage: UNK UKN, UNK
     Dates: start: 20100526
  7. MULTIVITAMIN                       /00097801/ [Concomitant]
     Dosage: 1 DF, DAILY
     Route: 048
  8. PROPRANOLOL HCL [Concomitant]
     Dosage: 60 MG, QD
  9. VITAMIN B 12 [Concomitant]
     Dosage: 1 DF, UNK
  10. ZOLOFT [Concomitant]
     Dosage: 100 MG, UNK
     Route: 048

REACTIONS (6)
  - Hypothyroidism [Not Recovered/Not Resolved]
  - Weight increased [Not Recovered/Not Resolved]
  - Alopecia [Recovering/Resolving]
  - Hypertension [Not Recovered/Not Resolved]
  - Helicobacter infection [Recovered/Resolved]
  - Dyspnoea [Unknown]
